FAERS Safety Report 4707569-8 (Version None)
Quarter: 2005Q3

REPORT INFORMATION
  Report Type: 
  Country: None (occurrence: None)
  Receive Date: 20050706
  Receipt Date: 20050629
  Transmission Date: 20060218
  Serious: Yes (Hospitalization, Other)
  Sender: FDA-Public Use
  Company Number: US-JNJFOC-20050607321

PATIENT
  Age: 9 Year
  Sex: Male
  Weight: 37.2 kg

DRUGS (3)
  1. CONCERTA [Suspect]
  2. ABILIFY [Concomitant]
  3. TENEX [Concomitant]

REACTIONS (7)
  - AGGRESSION [None]
  - ANXIETY [None]
  - BIPOLAR DISORDER [None]
  - ELECTROENCEPHALOGRAM ABNORMAL [None]
  - PSYCHOTIC DISORDER [None]
  - SCHIZOPHRENIA [None]
  - SUICIDAL IDEATION [None]
